FAERS Safety Report 7375485-1 (Version None)
Quarter: 2011Q1

REPORT INFORMATION
  Report Type: 
  Country: None (occurrence: None)
  Receive Date: 20110325
  Receipt Date: 20110321
  Transmission Date: 20110831
  Serious: Yes (Other)
  Sender: FDA-Public Use
  Company Number: FR-PFIZER INC-2011062411

PATIENT
  Age: 59 Year
  Sex: Male

DRUGS (8)
  1. STILNOX [Suspect]
     Dosage: UNK
     Route: 048
     Dates: start: 20020101
  2. IMUREL [Suspect]
     Dosage: UNK
     Route: 048
     Dates: start: 20011026, end: 20110103
  3. COZAAR [Suspect]
     Dosage: 50 MG, 1X/DAY
     Route: 048
  4. TAHOR [Suspect]
     Dosage: 40 MG, 1X/DAY
     Route: 048
  5. MEDROL [Suspect]
     Dosage: 4 MG, 1X/DAY
     Route: 048
     Dates: start: 20020101
  6. NEXIUM [Suspect]
     Dosage: 1 PER DAY
     Route: 048
  7. ASPEGIC 325 [Suspect]
     Dosage: 250 MG, 1X/DAY
  8. LEXOMIL [Suspect]
     Dosage: UNK
     Route: 048
     Dates: start: 20020101

REACTIONS (1)
  - SQUAMOUS CELL CARCINOMA OF SKIN [None]
